FAERS Safety Report 4599348-X (Version None)
Quarter: 2005Q1

REPORT INFORMATION
  Report Type: 
  Country: None (occurrence: None)
  Receive Date: 20050302
  Receipt Date: 20050302
  Transmission Date: 20050727
  Serious: Yes (Other)
  Sender: FDA-Public Use
  Company Number: None

PATIENT
  Sex: Female
  Weight: 71.2147 kg

DRUGS (7)
  1. GABAPENTIN [Suspect]
     Dosage: 300 MG TID PO DAILY
     Route: 048
  2. GLYBURIDE [Concomitant]
  3. WARFARIN [Concomitant]
  4. DITROPAN [Concomitant]
  5. PRAVACHOL [Concomitant]
  6. FUROSEMIDE [Concomitant]
  7. PENTOXYFILLINE [Concomitant]

REACTIONS (2)
  - ABNORMAL DREAMS [None]
  - PHARMACEUTICAL PRODUCT COMPLAINT [None]
